FAERS Safety Report 16157304 (Version 1)
Quarter: 2019Q2

REPORT INFORMATION
  Report Type: Spontaneous
  Country: US (occurrence: US)
  Receive Date: 20190403
  Receipt Date: 20190403
  Transmission Date: 20190711
  Serious: Yes (Other)
  Sender: FDA-Public Use
  Company Number: None

PATIENT
  Age: 38 Year
  Sex: Female
  Weight: 63 kg

DRUGS (5)
  1. IBUPROFEN. [Concomitant]
     Active Substance: IBUPROFEN
  2. AIMOVIG [Suspect]
     Active Substance: ERENUMAB-AOOE
     Indication: MIGRAINE PROPHYLAXIS
     Dates: start: 20180926, end: 20190321
  3. B1 VITAMIN [Concomitant]
  4. MAGNESIUM [Concomitant]
     Active Substance: MAGNESIUM
  5. MAXALT [Concomitant]
     Active Substance: RIZATRIPTAN BENZOATE

REACTIONS (9)
  - Corneal reflex decreased [None]
  - Paraesthesia [None]
  - Myalgia [None]
  - Arthralgia [None]
  - Constipation [None]
  - Dry eye [None]
  - Ocular hyperaemia [None]
  - Alopecia [None]
  - Aphasia [None]

NARRATIVE: CASE EVENT DATE: 20190214
